FAERS Safety Report 8062571 (Version 6)
Quarter: 2013Q3

REPORT INFORMATION
  Report Type: Spontaneous
  Country: US (occurrence: US)
  Receive Date: 20110801
  Receipt Date: 20130717
  Transmission Date: 20140515
  Serious: Yes (Hospitalization)
  Sender: FDA-Public Use
  Company Number: US-JNJFOC-20110709201

PATIENT
  Age: 55 Year
  Sex: Male
  Weight: 94.35 kg

DRUGS (6)
  1. REMICADE [Suspect]
     Indication: CROHN^S DISEASE
     Route: 042
     Dates: end: 201103
  2. REMICADE [Suspect]
     Indication: CROHN^S DISEASE
     Route: 042
     Dates: start: 201108
  3. REMICADE [Suspect]
     Indication: RHEUMATOID ARTHRITIS
     Route: 042
     Dates: start: 201108
  4. REMICADE [Suspect]
     Indication: RHEUMATOID ARTHRITIS
     Route: 042
     Dates: end: 201103
  5. COUMADIN [Suspect]
     Indication: PORTAL VEIN THROMBOSIS
     Route: 048
     Dates: start: 201102, end: 201103
  6. PRADAXA [Concomitant]
     Indication: COAGULOPATHY

REACTIONS (12)
  - Cardiomyopathy [Not Recovered/Not Resolved]
  - Pulmonary thrombosis [Not Recovered/Not Resolved]
  - Portal vein thrombosis [Not Recovered/Not Resolved]
  - Factor V deficiency [Not Recovered/Not Resolved]
  - Knee arthroplasty [Recovered/Resolved]
  - Abnormal loss of weight [Not Recovered/Not Resolved]
  - Haematoma [Recovered/Resolved]
  - Pneumonia [Recovered/Resolved]
  - Cardiac failure congestive [Not Recovered/Not Resolved]
  - Sepsis [Unknown]
  - Infusion related reaction [Recovered/Resolved]
  - Hot flush [Recovered/Resolved]
